FAERS Safety Report 5164856-X (Version None)
Quarter: 2006Q4

REPORT INFORMATION
  Report Type: 
  Country: None (occurrence: None)
  Receive Date: 20061124
  Receipt Date: 20061110
  Transmission Date: 20070319
  Serious: Yes (Death, Hospitalization)
  Sender: FDA-Public Use
  Company Number: 224659

PATIENT
  Age: 63 Year
  Sex: Female
  Weight: 68 kg

DRUGS (7)
  1. BEVACIZUMAB [Suspect]
     Indication: PANCREATIC CARCINOMA METASTATIC
     Dosage: 340 MG, Q2W, INTRAVENOUS
     Route: 042
     Dates: start: 20060124
  2. ERLOTINIB (ERLOTINIB) TABLET, 100MG [Suspect]
     Indication: PANCREATIC CARCINOMA METASTATIC
     Dosage: 100 MG, QD, ORAL
     Route: 048
     Dates: start: 20060124
  3. GEMCITABINE [Suspect]
     Indication: PANCREATIC CARCINOMA METASTATIC
     Dosage: 1700 MG, 1/WEEK, INTRAVENOUS
     Route: 042
     Dates: start: 20060124
  4. GAVISCON (UNK INGREDIENTS) (GASTROINTESTINAL DRUG NOS) [Concomitant]
  5. LISINOPRIL [Concomitant]
  6. DICLOFENAC (DICLOFENAIC SODIUM) [Concomitant]
  7. ACETAMINOPHEN [Concomitant]

REACTIONS (8)
  - ABDOMINAL PAIN [None]
  - ACUTE RESPIRATORY DISTRESS SYNDROME [None]
  - DIFFUSE ALVEOLAR DAMAGE [None]
  - LETHARGY [None]
  - MALAISE [None]
  - METABOLIC ACIDOSIS [None]
  - PYREXIA [None]
  - SINUS TACHYCARDIA [None]
